FAERS Safety Report 5688761-5 (Version None)
Quarter: 2008Q1

REPORT INFORMATION
  Report Type: 
  Country: None (occurrence: None)
  Receive Date: 20080331
  Receipt Date: 20080318
  Transmission Date: 20080703
  Serious: Yes (Hospitalization)
  Sender: FDA-Public Use
  Company Number: IT-AMGEN-US270544

PATIENT
  Sex: Male

DRUGS (4)
  1. ENBREL [Suspect]
     Indication: PSORIASIS
     Dosage: LYOPHILIZED 25MG
     Route: 058
     Dates: start: 20050301, end: 20070101
  2. ENBREL [Suspect]
     Dosage: PRE-FILLED SYRINGE 25MG
     Route: 058
     Dates: start: 20070101, end: 20080112
  3. METHOTREXATE [Suspect]
     Indication: PSORIASIS
     Route: 030
     Dates: start: 20050701, end: 20080112
  4. FOLINA [Concomitant]
     Indication: PSORIASIS
     Dosage: 5MG
     Route: 048
     Dates: start: 20050701

REACTIONS (2)
  - GAMMOPATHY [None]
  - HEPATITIS [None]
